FAERS Safety Report 15988163 (Version 2)
Quarter: 2019Q1

REPORT INFORMATION
  Report Type: Spontaneous
  Country: US (occurrence: US)
  Receive Date: 20190221
  Receipt Date: 20190313
  Transmission Date: 20190418
  Serious: No
  Sender: FDA-Public Use
  Company Number: US-BIOGEN-2019BI00691775

PATIENT
  Sex: Female

DRUGS (1)
  1. AVONEX [Suspect]
     Active Substance: INTERFERON BETA-1A
     Indication: MULTIPLE SCLEROSIS
     Route: 050
     Dates: start: 20181017, end: 20190131

REACTIONS (11)
  - Myalgia [Recovered/Resolved with Sequelae]
  - Anger [Recovered/Resolved]
  - Mental impairment [Recovered/Resolved with Sequelae]
  - Constipation [Not Recovered/Not Resolved]
  - Headache [Recovered/Resolved with Sequelae]
  - Crying [Recovered/Resolved with Sequelae]
  - Depression [Recovered/Resolved]
  - Influenza like illness [Recovered/Resolved with Sequelae]
  - Affect lability [Recovered/Resolved with Sequelae]
  - Feeling abnormal [Recovered/Resolved with Sequelae]
  - Malaise [Recovered/Resolved]
